FAERS Safety Report 9129272 (Version 2)
Quarter: 2013Q1

REPORT INFORMATION
  Report Type: Spontaneous
  Country: US (occurrence: US)
  Receive Date: 20130228
  Receipt Date: 20130311
  Transmission Date: 20140127
  Serious: Yes (Hospitalization)
  Sender: FDA-Public Use
  Company Number: CHPA2013US003741

PATIENT
  Age: 84 Year
  Sex: Female

DRUGS (1)
  1. VOLTAREN GEL [Suspect]
     Indication: ARTHRITIS
     Dosage: UNK, UNK
     Route: 061
     Dates: start: 2011

REACTIONS (5)
  - Posture abnormal [Recovered/Resolved]
  - Arthritis [Unknown]
  - Walking aid user [Unknown]
  - Underdose [Unknown]
  - Drug administered at inappropriate site [Unknown]
